FAERS Safety Report 9493672 (Version 2)
Quarter: 2014Q1

REPORT INFORMATION
  Report Type: Report from Study
  Country: BR (occurrence: BR)
  Receive Date: 20130902
  Receipt Date: 20140204
  Transmission Date: 20141002
  Serious: Yes (Other)
  Sender: FDA-Public Use
  Company Number: PHHY2013BR094970

PATIENT
  Age: 68 Year
  Sex: Female
  Weight: 61 kg

DRUGS (3)
  1. DIOVAN [Suspect]
     Indication: HYPERTENSION
     Dosage: 320 MG, IN THE MORNING
     Route: 048
  2. OS-CAL + D [Concomitant]
     Indication: MINERAL SUPPLEMENTATION
     Dosage: 2 DF, (500 MG CALCIUM CARBONATE, 200 IU CHOLECALCIFEROL)(1 DF IN MORN, 1 DF IN NIGHT)
     Route: 048
  3. ALENDRONATE SODIUM [Concomitant]
     Indication: BONE DISORDER
     Dosage: 70 MG, WEEKLY
     Route: 048

REACTIONS (4)
  - Breast cancer [Recovered/Resolved]
  - Hypothyroidism [Recovered/Resolved]
  - Hypertension [Recovering/Resolving]
  - Blood pressure inadequately controlled [Unknown]
